FAERS Safety Report 8083688-6 (Version None)
Quarter: 2012Q1

REPORT INFORMATION
  Report Type: 
  Country: None (occurrence: None)
  Receive Date: 20120127
  Receipt Date: 20110112
  Transmission Date: 20120608
  Serious: No
  Sender: FDA-Public Use
  Company Number: US-ABBOTT-11P-163-0696931-00

PATIENT
  Age: 47 Year
  Sex: Female

DRUGS (8)
  1. CYMBALTA [Concomitant]
     Indication: FIBROMYALGIA
  2. DAYPRO [Concomitant]
     Indication: INFLAMMATION
  3. HUMIRA [Suspect]
     Indication: RHEUMATOID ARTHRITIS
     Dates: start: 20101225, end: 20101227
  4. VICODIN [Concomitant]
     Indication: PAIN
     Dosage: 5/500 MG AS NEEDED EVERY 6 HOURS
  5. FOLIC ACID [Concomitant]
     Indication: PRODUCT USED FOR UNKNOWN INDICATION
  6. METHOTREXATE [Concomitant]
     Indication: PRODUCT USED FOR UNKNOWN INDICATION
  7. FLEXOR [Concomitant]
     Indication: BACK PAIN
     Route: 062
  8. RESCUE INHALER [Concomitant]
     Indication: PRODUCT USED FOR UNKNOWN INDICATION

REACTIONS (8)
  - CHILLS [None]
  - STOMATITIS [None]
  - PITYRIASIS ROSEA [None]
  - NAUSEA [None]
  - HEADACHE [None]
  - HYPERHIDROSIS [None]
  - INFLUENZA LIKE ILLNESS [None]
  - VOMITING [None]
